FAERS Safety Report 19088513 (Version 1)
Quarter: 2021Q2

REPORT INFORMATION
  Report Type: Spontaneous
  Country: US (occurrence: US)
  Receive Date: 20210402
  Receipt Date: 20210402
  Transmission Date: 20210717
  Serious: No
  Sender: FDA-Public Use
  Company Number: US-ASTRAZENECA-2021A222860

PATIENT
  Age: 24 Year
  Sex: Female

DRUGS (4)
  1. SEROQUEL [Suspect]
     Active Substance: QUETIAPINE FUMARATE
     Indication: BIPOLAR I DISORDER
     Route: 048
  2. SCOPOLAMINE PATCH [Concomitant]
     Active Substance: SCOPOLAMINE
     Indication: NAUSEA
     Route: 062
  3. SEROQUEL [Suspect]
     Active Substance: QUETIAPINE FUMARATE
     Indication: MANIA
     Route: 048
  4. PRENATAL VITAMIN [Concomitant]
     Active Substance: VITAMINS
     Route: 048

REACTIONS (3)
  - Exposure during pregnancy [Unknown]
  - Hallucination [Unknown]
  - Lethargy [Unknown]
